FAERS Safety Report 25243048 (Version 1)
Quarter: 2025Q2

REPORT INFORMATION
  Report Type: Spontaneous
  Country: IN (occurrence: IN)
  Receive Date: 20250428
  Receipt Date: 20250428
  Transmission Date: 20250717
  Serious: Yes (Hospitalization, Other)
  Sender: CIPLA
  Company Number: IN-MLMSERVICE-20250407-PI469961-00120-1

PATIENT

DRUGS (1)
  1. DICLOFENAC [Suspect]
     Active Substance: DICLOFENAC
     Indication: Pyrexia
     Route: 065

REACTIONS (4)
  - Myocarditis [Recovering/Resolving]
  - Gastroenteritis salmonella [Recovering/Resolving]
  - Portal hypertensive gastropathy [Recovering/Resolving]
  - Pleural effusion [Unknown]
